FAERS Safety Report 15549866 (Version 1)
Quarter: 2018Q4

REPORT INFORMATION
  Report Type: Spontaneous
  Country: US (occurrence: US)
  Receive Date: 20181018
  Receipt Date: 20181018
  Transmission Date: 20190205
  Serious: Yes (Death)
  Sender: FDA-Public Use
  Company Number: None

PATIENT
  Age: 14 Year
  Sex: Male

DRUGS (7)
  1. ZOLINZA [Suspect]
     Active Substance: VORINOSTAT
     Indication: BRAIN NEOPLASM MALIGNANT
     Route: 048
     Dates: start: 20180905
  2. DEXAMETHASONE. [Concomitant]
     Active Substance: DEXAMETHASONE
  3. ZOLINZA [Suspect]
     Active Substance: VORINOSTAT
     Indication: BRAIN STEM SYNDROME
     Route: 048
     Dates: start: 20180905
  4. LACTULOSE. [Concomitant]
     Active Substance: LACTULOSE
  5. AMLODIPINE [Concomitant]
     Active Substance: AMLODIPINE BESYLATE
  6. FAMOTIDINE. [Concomitant]
     Active Substance: FAMOTIDINE
  7. POLYETHYLENE GLYCOL POWDER [Concomitant]

REACTIONS (1)
  - Death [None]

NARRATIVE: CASE EVENT DATE: 20181006
